FAERS Safety Report 9165782 (Version 2)
Quarter: 2013Q1

REPORT INFORMATION
  Report Type: Spontaneous
  Country: CN (occurrence: CN)
  Receive Date: 20130315
  Receipt Date: 20130318
  Transmission Date: 20140127
  Serious: Yes (Other)
  Sender: FDA-Public Use
  Company Number: CN-BAYER-2013-027788

PATIENT
  Age: 66 Year
  Sex: Female

DRUGS (2)
  1. ADALAT [Suspect]
     Route: 048
  2. GLUCOBAY [Suspect]
     Indication: DIABETES MELLITUS
     Route: 048

REACTIONS (2)
  - Diabetes mellitus [None]
  - Diabetes mellitus inadequate control [None]
